FAERS Safety Report 16437086 (Version 1)
Quarter: 2019Q2

REPORT INFORMATION
  Report Type: Spontaneous
  Country: ES (occurrence: ES)
  Receive Date: 20190615
  Receipt Date: 20190615
  Transmission Date: 20190711
  Serious: Yes (Hospitalization)
  Sender: FDA-Public Use
  Company Number: PHHY2019ES135532

PATIENT
  Age: 10 Month

DRUGS (5)
  1. NISTATINA [Concomitant]
     Active Substance: NYSTATIN
     Indication: PRODUCT USED FOR UNKNOWN INDICATION
     Dosage: UNK
     Route: 065
  2. PREDNISOLONA [Concomitant]
     Active Substance: PREDNISOLONE
     Indication: PRODUCT USED FOR UNKNOWN INDICATION
     Dosage: UNK
     Route: 065
  3. CETRAXAL PLUS [Concomitant]
     Indication: PRODUCT USED FOR UNKNOWN INDICATION
     Dosage: UNK
     Route: 065
  4. AMOXICILLIN+CLAVULANIC ACID [Suspect]
     Active Substance: AMOXICILLIN\CLAVULANIC ACID
     Indication: OTITIS MEDIA
     Dosage: 200 MG, UNK
     Route: 048
     Dates: start: 20190603, end: 20190603
  5. IBUPROFENO [Concomitant]
     Active Substance: IBUPROFEN
     Indication: PYREXIA
     Dosage: UNK
     Route: 065

REACTIONS (2)
  - Rash maculo-papular [Recovered/Resolved]
  - Irritability [Recovered/Resolved]

NARRATIVE: CASE EVENT DATE: 20190604
